FAERS Safety Report 7022625-X (Version None)
Quarter: 2010Q3

REPORT INFORMATION
  Report Type: 
  Country: None (occurrence: None)
  Receive Date: 20100930
  Receipt Date: 20100920
  Transmission Date: 20110219
  Serious: Yes (Other)
  Sender: FDA-Public Use
  Company Number: US-WYE-H17621310

PATIENT
  Sex: Male

DRUGS (1)
  1. PRISTIQ [Suspect]
     Indication: DEPRESSED MOOD
     Dosage: UNKNOWN

REACTIONS (7)
  - DRUG WITHDRAWAL SYNDROME [None]
  - FEELING ABNORMAL [None]
  - HOMICIDAL IDEATION [None]
  - HYPERHIDROSIS [None]
  - PARAESTHESIA [None]
  - SUICIDAL IDEATION [None]
  - UNEVALUABLE EVENT [None]
